FAERS Safety Report 24050744 (Version 4)
Quarter: 2024Q4

REPORT INFORMATION
  Report Type: Spontaneous
  Country: TW (occurrence: TW)
  Receive Date: 20240704
  Receipt Date: 20241014
  Transmission Date: 20250115
  Serious: Yes (Other)
  Sender: PFIZER
  Company Number: TW-PFIZER INC-PV202400082362

PATIENT
  Sex: Male

DRUGS (3)
  1. NGENLA [Suspect]
     Active Substance: SOMATROGON-GHLA
     Dosage: UNK
     Route: 058
  2. NGENLA [Suspect]
     Active Substance: SOMATROGON-GHLA
     Dosage: REDUCE THE DOSAGE BY 10MG
     Route: 058
  3. NGENLA [Suspect]
     Active Substance: SOMATROGON-GHLA
     Dosage: UNK
     Route: 058

REACTIONS (1)
  - Extra dose administered [Unknown]

NARRATIVE: CASE EVENT DATE: 20240620
